FAERS Safety Report 12418271 (Version 10)
Quarter: 2017Q1

REPORT INFORMATION
  Report Type: Spontaneous
  Country: US (occurrence: US)
  Receive Date: 20160531
  Receipt Date: 20170208
  Transmission Date: 20170428
  Serious: Yes (Hospitalization)
  Sender: FDA-Public Use
  Company Number: US-PFIZER INC-2016258152

PATIENT
  Age: 74 Year
  Sex: Male
  Weight: 109 kg

DRUGS (9)
  1. SUTENT [Suspect]
     Active Substance: SUNITINIB MALATE
     Indication: METASTATIC RENAL CELL CARCINOMA
     Dosage: 50 MG, CYCLIC (2 WEEKS ON/1 WEEK OFF)
     Dates: start: 20160415, end: 20170202
  2. CELEBREX [Concomitant]
     Active Substance: CELECOXIB
     Dosage: UNK
  3. SUTENT [Suspect]
     Active Substance: SUNITINIB MALATE
     Dosage: 50 MG, CYCLIC (28 DAYS ON 14 DAYS OFF)
     Dates: start: 20160415
  4. BABY ASPIRIN [Concomitant]
     Active Substance: ASPIRIN
     Dosage: UNK
  5. LIPITOR [Concomitant]
     Active Substance: ATORVASTATIN CALCIUM
     Dosage: UNK
  6. VITAMIN B6 [Concomitant]
     Active Substance: PYRIDOXINE HYDROCHLORIDE
     Dosage: UNK
  7. ALLEGRA [Concomitant]
     Active Substance: FEXOFENADINE HYDROCHLORIDE
     Dosage: UNK
  8. AFRIN [Concomitant]
     Active Substance: OXYMETAZOLINE
     Dosage: PRN (AS NEEDED)
     Route: 055
  9. PROCHLORPERAZINE. [Concomitant]
     Active Substance: PROCHLORPERAZINE
     Dosage: 100 MG, WHEN NEEDED

REACTIONS (31)
  - Neoplasm progression [Unknown]
  - Nausea [Not Recovered/Not Resolved]
  - Hyperkeratosis [Unknown]
  - Gait disturbance [Unknown]
  - Blister [Unknown]
  - Rash [Not Recovered/Not Resolved]
  - Muscular weakness [Recovering/Resolving]
  - Erythema [Not Recovered/Not Resolved]
  - Blood pressure increased [Not Recovered/Not Resolved]
  - Limb discomfort [Not Recovered/Not Resolved]
  - Constipation [Unknown]
  - Oral pain [Not Recovered/Not Resolved]
  - Dysstasia [Recovering/Resolving]
  - Pruritus [Unknown]
  - Chapped lips [Unknown]
  - Laceration [Recovered/Resolved]
  - Skin tightness [Unknown]
  - Arthritis [Not Recovered/Not Resolved]
  - Pain in extremity [Not Recovered/Not Resolved]
  - Pain [Not Recovered/Not Resolved]
  - Temperature intolerance [Not Recovered/Not Resolved]
  - Contusion [Unknown]
  - Facial pain [Unknown]
  - Myalgia [Recovering/Resolving]
  - Stomatitis [Unknown]
  - Palmar-plantar erythrodysaesthesia syndrome [Unknown]
  - Lip pain [Not Recovered/Not Resolved]
  - Nasal discomfort [Unknown]
  - Swelling [Unknown]
  - Fatigue [Not Recovered/Not Resolved]
  - Ear pain [Unknown]
